FAERS Safety Report 13139323 (Version 1)
Quarter: 2017Q1

REPORT INFORMATION
  Report Type: Spontaneous
  Country: ES (occurrence: ES)
  Receive Date: 20170123
  Receipt Date: 20170123
  Transmission Date: 20170428
  Serious: Yes (Hospitalization, Disabling, Other)
  Sender: FDA-Public Use
  Company Number: ES-LANNETT COMPANY, INC.-ES-2017LAN000395

PATIENT
  Age: 52 Year
  Sex: Male
  Weight: 108 kg

DRUGS (12)
  1. INSULIN LISPRO W/INSULIN LISPRO PROTAMINE SUS [Concomitant]
     Indication: TYPE 2 DIABETES MELLITUS
     Dosage: 15 IU IN MORNING, 17 IU AT LUNCH, 5 IU AT NIGHT
     Route: 058
  2. TELMISARTAN. [Concomitant]
     Active Substance: TELMISARTAN
     Indication: PRODUCT USED FOR UNKNOWN INDICATION
     Dosage: 25 MG, QD
     Route: 048
  3. LACTULOSE. [Concomitant]
     Active Substance: LACTULOSE
     Indication: CONSTIPATION
     Dosage: 10 G, TID
     Route: 048
  4. LOSARTAN. [Concomitant]
     Active Substance: LOSARTAN
     Indication: PRODUCT USED FOR UNKNOWN INDICATION
     Dosage: 25 MG, QD
     Route: 048
  5. ZOLPIDEM [Concomitant]
     Active Substance: ZOLPIDEM\ZOLPIDEM TARTRATE
     Indication: PRODUCT USED FOR UNKNOWN INDICATION
     Dosage: 10 MG, QD
     Route: 048
  6. ESCITALOPRAM OXALATE. [Concomitant]
     Active Substance: ESCITALOPRAM OXALATE
     Indication: PRODUCT USED FOR UNKNOWN INDICATION
     Dosage: 30 MG, QD
     Route: 048
  7. IBUPROFEN. [Concomitant]
     Active Substance: IBUPROFEN
     Indication: PAIN IN EXTREMITY
     Dosage: 600 MG, TID MORNING LUNCH EVENING
     Route: 048
  8. CEFUROXIME. [Concomitant]
     Active Substance: CEFUROXIME
     Indication: URINARY TRACT INFECTION
     Dosage: 250 MG, BID
     Route: 048
  9. MORPHINE SULFATE. [Suspect]
     Active Substance: MORPHINE SULFATE
     Dosage: 80 MG DAILY ON DAYS 3,4, 100 MG DAILY ON DAYS 5, 6 THEN 120 MG DAILY ON DAY 7,8 OF TREATMENT
  10. PREGABALIN. [Concomitant]
     Active Substance: PREGABALIN
     Indication: ADJUVANT THERAPY
     Dosage: 75 MG, BID
     Route: 048
  11. MORPHINE SULFATE. [Suspect]
     Active Substance: MORPHINE SULFATE
     Indication: PAIN IN EXTREMITY
     Dosage: 20 MG BID AND 10 MG PRN
     Route: 048
  12. BEMIPARIN SODIUM [Concomitant]
     Active Substance: BEMIPARIN SODIUM
     Indication: PRODUCT USED FOR UNKNOWN INDICATION
     Dosage: 10000 IU, QD
     Route: 058

REACTIONS (4)
  - Tinnitus [Recovering/Resolving]
  - Overdose [Recovered/Resolved]
  - Deafness bilateral [Not Recovered/Not Resolved]
  - Unresponsive to stimuli [Recovered/Resolved]
